FAERS Safety Report 10695464 (Version 1)
Quarter: 2015Q1

REPORT INFORMATION
  Report Type: Spontaneous
  Country: US (occurrence: None)
  Receive Date: 20150106
  Receipt Date: 20150106
  Transmission Date: 20150721
  Serious: No
  Sender: FDA-Public Use
  Company Number: None

PATIENT

DRUGS (22)
  1. CYCLOBENZAPRIN (CYCLOBENZAPRINE) (CYCLOBENZAPRINE) [Suspect]
     Active Substance: CYCLOBENZAPRINE
     Indication: ARTHRALGIA
     Dosage: 5 MG, 1 TABLET, 1 TABLET 3 TIMES DAY, BY MOUTH
     Route: 048
     Dates: start: 20141031, end: 20141031
  2. CATHARIN E MED [Concomitant]
  3. ASPIRIN. [Concomitant]
     Active Substance: ASPIRIN
  4. AMODARONE [Concomitant]
  5. PROBIOTIC [Concomitant]
     Active Substance: PROBIOTICS NOS
  6. ZOLPIDEM TAB [Concomitant]
  7. LANTUS [Concomitant]
     Active Substance: INSULIN GLARGINE
  8. LISINOPRIL. [Concomitant]
     Active Substance: LISINOPRIL
  9. BIOTIN [Concomitant]
     Active Substance: BIOTIN
  10. SENSIPAR [Concomitant]
     Active Substance: CINACALCET HYDROCHLORIDE
  11. AMLODIPINE BESYLATE. [Concomitant]
     Active Substance: AMLODIPINE BESYLATE
  12. RENA-VITE TAB [Concomitant]
  13. ISOSORB MOMO ER [Concomitant]
  14. RENAL TAB ZN-MULTIVIT MINERAL [Concomitant]
  15. GLIMEPIRIDE TAB [Concomitant]
  16. COLESTIPOL [Concomitant]
     Active Substance: COLESTIPOL
  17. METOPROLOL ER [Concomitant]
     Active Substance: METOPROLOL SUCCINATE
  18. RENVELA TABLETS [Concomitant]
  19. ALPRAZOLAM. [Concomitant]
     Active Substance: ALPRAZOLAM
  20. HYDROCODONE APAP TAB [Concomitant]
  21. OMEPRAZOLE. [Concomitant]
     Active Substance: OMEPRAZOLE
  22. HYDRALAZINE [Concomitant]
     Active Substance: HYDRALAZINE HYDROCHLORIDE

REACTIONS (2)
  - Hypertrichosis [None]
  - Hair growth abnormal [None]

NARRATIVE: CASE EVENT DATE: 20141031
